FAERS Safety Report 9264119 (Version 1)
Quarter: 2013Q2

REPORT INFORMATION
  Report Type: Report from Study
  Country: IT (occurrence: IT)
  Receive Date: 20130430
  Receipt Date: 20130430
  Transmission Date: 20140414
  Serious: Yes (Hospitalization)
  Sender: FDA-Public Use
  Company Number: IT-BAYER-2013-027253

PATIENT
  Sex: Male
  Weight: 70 kg

DRUGS (3)
  1. REGORAFENIB [Suspect]
     Indication: COLORECTAL CANCER METASTATIC
     Dosage: CYCLE 3, DAILY DOSE 160 MG
     Route: 048
     Dates: start: 20130206, end: 20130226
  2. RAMIPRIL [Concomitant]
     Indication: HYPERTENSION
     Dosage: DAILY DOSE 5 MG
     Route: 048
     Dates: start: 20121207
  3. SYNACTHEN [Concomitant]
     Indication: ASTHENIA
     Dosage: 1 MG/ML, OW
     Route: 030
     Dates: start: 20130206

REACTIONS (1)
  - Necrotising fasciitis [Recovered/Resolved]
